FAERS Safety Report 7631250-9 (Version None)
Quarter: 2011Q3

REPORT INFORMATION
  Report Type: 
  Country: None (occurrence: None)
  Receive Date: 20110725
  Receipt Date: 20110712
  Transmission Date: 20111222
  Serious: Yes (Other)
  Sender: FDA-Public Use
  Company Number: DE-UCBSA-034713

PATIENT
  Sex: Male
  Weight: 64 kg

DRUGS (8)
  1. METOPROLOL TARTRATE [Concomitant]
     Dosage: SINGLE DOSE : 23.75 (UNIT UNSPECIFIED) ONCE A DAY
     Route: 048
     Dates: start: 19940101
  2. DIGITOXIN TAB [Concomitant]
     Dosage: SINGLE DOSE : 0.07 (UNIT UNSPECIFIED) ONCE A DAY
     Route: 048
     Dates: start: 19890101
  3. ATACAND [Suspect]
  4. FALITHROM [Concomitant]
     Route: 048
     Dates: start: 19890101
  5. KEPPRA [Suspect]
     Indication: EPILEPSY
     Route: 048
     Dates: start: 20090804
  6. SIMVASTATIN [Concomitant]
     Dosage: SINGLE DOSE : 20 ONCE A DAY
     Route: 048
     Dates: start: 20070101
  7. SPIRONOLACTONE [Concomitant]
     Dosage: SINGLE DOSE : 25 (UNIT UNSPECIFIED) ONCE A DAY
     Route: 048
     Dates: start: 20070101
  8. LEVOTHYROXINE SODIUM [Concomitant]
     Dosage: SINGLE DOSE : 75 (UNIT UNSPECIFIED) ONCE A DAY
     Route: 048
     Dates: start: 20040101

REACTIONS (2)
  - MUSCLE SPASMS [None]
  - DYSKINESIA [None]
